FAERS Safety Report 6177958-6 (Version None)
Quarter: 2009Q2

REPORT INFORMATION
  Report Type: 
  Country: None (occurrence: None)
  Receive Date: 20090504
  Receipt Date: 20090422
  Transmission Date: 20091009
  Serious: Yes (Hospitalization, Disabling, Other)
  Sender: FDA-Public Use
  Company Number: US-MERCK-0811USA02521

PATIENT
  Age: 83 Year
  Sex: Female

DRUGS (6)
  1. FOSAMAX [Suspect]
     Indication: OSTEOPOROSIS
     Route: 048
     Dates: start: 19951201, end: 20010201
  2. FOSAMAX [Suspect]
     Route: 048
     Dates: start: 20010201, end: 20051209
  3. CALCIUM (UNSPECIFIED) [Concomitant]
     Indication: OSTEOPOROSIS
     Route: 065
  4. DIDRONEL [Suspect]
     Indication: OSTEOPOROSIS
     Route: 048
     Dates: start: 19900706, end: 19951201
  5. BONIVA [Suspect]
     Indication: OSTEOPOROSIS
     Route: 048
     Dates: start: 20060727
  6. PREDNISONE [Concomitant]
     Route: 065
     Dates: start: 19810101

REACTIONS (43)
  - ABDOMINAL TENDERNESS [None]
  - ACUTE SINUSITIS [None]
  - ADVERSE DRUG REACTION [None]
  - AORTIC VALVE SCLEROSIS [None]
  - ARTHRALGIA [None]
  - ASTHENIA [None]
  - BRONCHITIS [None]
  - CARDIAC DISORDER [None]
  - CARDIAC FAILURE CONGESTIVE [None]
  - CELLULITIS [None]
  - CONSTIPATION [None]
  - DECREASED APPETITE [None]
  - DEHYDRATION [None]
  - DIABETES MELLITUS INADEQUATE CONTROL [None]
  - EUSTACHIAN TUBE DYSFUNCTION [None]
  - FAILURE TO THRIVE [None]
  - FEMUR FRACTURE [None]
  - IMPAIRED HEALING [None]
  - MACROCYTOSIS [None]
  - MICTURITION URGENCY [None]
  - MUSCLE SPASMS [None]
  - MYOPATHY [None]
  - NAUSEA [None]
  - NEURODERMATITIS [None]
  - NEUROPATHY PERIPHERAL [None]
  - ORAL INFECTION [None]
  - OSTEOARTHRITIS [None]
  - OSTEONECROSIS [None]
  - PNEUMONIA [None]
  - POLLAKIURIA [None]
  - POROKERATOSIS [None]
  - RENAL FAILURE CHRONIC [None]
  - RHEUMATOID ARTHRITIS [None]
  - RIB FRACTURE [None]
  - SPINAL OSTEOARTHRITIS [None]
  - STASIS DERMATITIS [None]
  - TEMPORAL ARTERITIS [None]
  - TOOTH DISORDER [None]
  - TREMOR [None]
  - TYPE 2 DIABETES MELLITUS [None]
  - UPPER RESPIRATORY TRACT INFECTION [None]
  - VISUAL IMPAIRMENT [None]
  - VOMITING [None]
